FAERS Safety Report 15743461 (Version 1)
Quarter: 2018Q4

REPORT INFORMATION
  Report Type: Spontaneous
  Country: BE (occurrence: BE)
  Receive Date: 20181220
  Receipt Date: 20181220
  Transmission Date: 20190205
  Serious: Yes (Other)
  Sender: FDA-Public Use
  Company Number: BE-TEVA-2018-BE-989091

PATIENT
  Age: 62 Year
  Sex: Male

DRUGS (3)
  1. PANTOMED 20 MG [Concomitant]
     Route: 065
  2. DICLOFENAC [Suspect]
     Active Substance: DICLOFENAC
     Route: 065
  3. CORUNO [Concomitant]
     Active Substance: MOLSIDOMINE
     Dosage: 2 DOSAGE FORMS DAILY;
     Route: 065

REACTIONS (1)
  - Dermatitis exfoliative generalised [Not Recovered/Not Resolved]
